FAERS Safety Report 8103951-X (Version None)
Quarter: 2012Q1

REPORT INFORMATION
  Report Type: 
  Country: None (occurrence: None)
  Receive Date: 20120201
  Receipt Date: 20120127
  Transmission Date: 20120608
  Serious: Yes (Other)
  Sender: FDA-Public Use
  Company Number: PHHY2012CA007898

PATIENT
  Sex: Female

DRUGS (1)
  1. ZOLEDRONOC ACID [Suspect]
     Indication: OSTEOPOROSIS
     Dosage: UNK
     Route: 042
     Dates: start: 20110315

REACTIONS (6)
  - APHAGIA [None]
  - COMMUNICATION DISORDER [None]
  - MALAISE [None]
  - INSOMNIA [None]
  - GENERAL PHYSICAL HEALTH DETERIORATION [None]
  - ABASIA [None]
